FAERS Safety Report 25376845 (Version 2)
Quarter: 2025Q2

REPORT INFORMATION
  Report Type: Spontaneous
  Country: US (occurrence: US)
  Receive Date: 20250530
  Receipt Date: 20250612
  Transmission Date: 20250716
  Serious: Yes (Hospitalization, Other)
  Sender: NOVO NORDISK
  Company Number: US-NOVOPROD-1439306

PATIENT
  Sex: Female

DRUGS (2)
  1. NOVOLOG [Suspect]
     Active Substance: INSULIN ASPART
     Indication: Diabetes mellitus
     Dates: start: 2023
  2. INSULIN ASPART [Suspect]
     Active Substance: INSULIN ASPART
     Indication: Diabetes mellitus
     Route: 058

REACTIONS (4)
  - Vaginal disorder [Not Recovered/Not Resolved]
  - Injection site discolouration [Recovered/Resolved]
  - Injection site discolouration [Recovered/Resolved]
  - Product dispensing error [Unknown]
